FAERS Safety Report 24064505 (Version 1)
Quarter: 2024Q3

REPORT INFORMATION
  Report Type: Spontaneous
  Country: FR (occurrence: FR)
  Receive Date: 20240709
  Receipt Date: 20240709
  Transmission Date: 20241016
  Serious: Yes (Hospitalization)
  Sender: MYLAN
  Company Number: None

PATIENT
  Age: 89 Year
  Sex: Male

DRUGS (2)
  1. TERBINAFINE [Interacting]
     Active Substance: TERBINAFINE
     Indication: Dermatophytosis
     Dosage: 250 MILLIGRAM, QD (250 MG 0-0-1)
     Route: 048
     Dates: start: 20230615, end: 20240428
  2. VORTIOXETINE HYDROBROMIDE [Interacting]
     Active Substance: VORTIOXETINE HYDROBROMIDE
     Indication: Depression
     Dosage: 10 MILLIGRAM, QD (10 MG/DAY)
     Route: 048
     Dates: start: 20210316

REACTIONS (2)
  - Hypoglycaemia [Recovered/Resolved]
  - Drug interaction [Recovered/Resolved]

NARRATIVE: CASE EVENT DATE: 20240425
